FAERS Safety Report 5592933-8 (Version None)
Quarter: 2008Q1

REPORT INFORMATION
  Report Type: 
  Country: None (occurrence: None)
  Receive Date: 20080114
  Receipt Date: 20080114
  Transmission Date: 20080703
  Serious: No
  Sender: FDA-Public Use
  Company Number: None

PATIENT
  Sex: Male
  Weight: 54.4316 kg

DRUGS (1)
  1. TPPD 5 TO/0.1 ML SANOFI PASTEUR LIMITED [Suspect]
     Indication: TUBERCULIN TEST
     Dosage: 0.1 ML  ROUTINE  ID
     Route: 026
     Dates: start: 20071231, end: 20080109

REACTIONS (4)
  - APPLICATION SITE ERYTHEMA [None]
  - APPLICATION SITE INDURATION [None]
  - APPLICATION SITE PAIN [None]
  - APPLICATION SITE PRURITUS [None]
